FAERS Safety Report 5270092-9 (Version None)
Quarter: 2007Q1

REPORT INFORMATION
  Report Type: 
  Country: None (occurrence: None)
  Receive Date: 20061213
  Receipt Date: 20051011
  Transmission Date: 20070707
  Serious: No
  Sender: FDA-Public Use
  Company Number: 2005UW15223

PATIENT
  Age: 82 Year
  Sex: Female
  Weight: 67.131 kg

DRUGS (10)
  1. NOLVADEX [Suspect]
     Indication: BREAST CANCER
     Dosage: 10 MG BID PO
     Route: 048
     Dates: start: 19940101, end: 19990101
  2. NOLVADEX [Suspect]
     Indication: BREAST CANCER
     Dates: start: 20020101
  3. MAGNESIUM [Concomitant]
  4. ATENOLOL [Concomitant]
  5. LIPITOR [Concomitant]
  6. FUROSEMIDE [Concomitant]
  7. ECOTRIN [Concomitant]
  8. TYLENOL [Concomitant]
  9. NO MATCH [Concomitant]
  10. AROMASIN [Concomitant]

REACTIONS (2)
  - RETINAL DISORDER [None]
  - VISUAL DISTURBANCE [None]
